FAERS Safety Report 4903387-6 (Version None)
Quarter: 2006Q1

REPORT INFORMATION
  Report Type: 
  Country: None (occurrence: None)
  Receive Date: 20060203
  Receipt Date: 20060125
  Transmission Date: 20060701
  Serious: Yes (Hospitalization)
  Sender: FDA-Public Use
  Company Number: 028-20785-06010529

PATIENT
  Age: 56 Year
  Sex: Male

DRUGS (10)
  1. THALOMID [Suspect]
     Indication: MULTIPLE MYELOMA
     Dosage: ORAL
     Route: 048
     Dates: start: 20041001, end: 20050801
  2. VELCADE [Suspect]
     Indication: MULTIPLE MYELOMA
     Dates: start: 20050101, end: 20050201
  3. VELCADE [Suspect]
     Indication: MULTIPLE MYELOMA
     Dates: start: 20050501
  4. DEXAMETHASONE [Suspect]
     Indication: MULTIPLE MYELOMA
     Dates: end: 20050201
  5. DEXAMETHASONE [Suspect]
     Indication: MULTIPLE MYELOMA
     Dates: start: 20050501
  6. DEXAMETHASONE [Suspect]
     Indication: MULTIPLE MYELOMA
     Dates: start: 20050701
  7. CISPLATIN [Suspect]
     Indication: MULTIPLE MYELOMA
     Dates: start: 20050701
  8. ADRIAMYCIN PFS [Suspect]
     Indication: MULTIPLE MYELOMA
     Dates: start: 20050701
  9. CYCLOPHOSPHAMIDE [Suspect]
     Indication: MULTIPLE MYELOMA
     Dates: start: 20050701
  10. ETOPOSIDE [Suspect]
     Indication: MULTIPLE MYELOMA
     Dates: start: 20050701

REACTIONS (10)
  - DISEASE PROGRESSION [None]
  - FEBRILE NEUTROPENIA [None]
  - HYPERCALCAEMIA [None]
  - MULTIPLE MYELOMA [None]
  - PANCYTOPENIA [None]
  - PLEURAL EFFUSION [None]
  - PNEUMONIA [None]
  - PROTEINURIA [None]
  - RADIATION PNEUMONITIS [None]
  - SCIATICA [None]
